FAERS Safety Report 21917929 (Version 8)
Quarter: 2023Q2

REPORT INFORMATION
  Report Type: Report from Study
  Country: CO (occurrence: CO)
  Receive Date: 20230127
  Receipt Date: 20230606
  Transmission Date: 20230722
  Serious: Yes (Hospitalization)
  Sender: FDA-Public Use
  Company Number: CO-002147023-NVSC2023CO013940

PATIENT
  Sex: Female
  Weight: 61 kg

DRUGS (6)
  1. ELTROMBOPAG OLAMINE [Suspect]
     Active Substance: ELTROMBOPAG OLAMINE
     Indication: Immune thrombocytopenia
     Dosage: 50 MG, QD (50 MG/ TWO OF 25 MG)
     Route: 048
  2. ELTROMBOPAG OLAMINE [Suspect]
     Active Substance: ELTROMBOPAG OLAMINE
     Dosage: UNK, QD
     Route: 048
  3. ELTROMBOPAG OLAMINE [Suspect]
     Active Substance: ELTROMBOPAG OLAMINE
     Dosage: 50 MG, QD
     Route: 048
     Dates: start: 20230114
  4. DEFLAZACORT [Concomitant]
     Active Substance: DEFLAZACORT
     Indication: Product used for unknown indication
     Dosage: 7.5 MG, QD
     Route: 065
  5. DEFLAZACORT [Concomitant]
     Active Substance: DEFLAZACORT
     Dosage: 30 MG (FOR 5 DAYS)
     Route: 065
     Dates: start: 20220727
  6. DEFLAZACORT [Concomitant]
     Active Substance: DEFLAZACORT
     Dosage: 6 MG (25 (TWENTY-FIVE) TO TAKE ONE DAILY AFTER LAPSING THE 5 DAYS WITH A 30 MG DOSE)
     Route: 065
     Dates: start: 20221029

REACTIONS (11)
  - Eating disorder [Unknown]
  - Insomnia [Unknown]
  - Arthralgia [Unknown]
  - Malaise [Unknown]
  - Peripheral swelling [Unknown]
  - Memory impairment [Unknown]
  - Pain in extremity [Unknown]
  - Tendon pain [Unknown]
  - Myalgia [Unknown]
  - Diarrhoea [Unknown]
  - Vomiting [Unknown]
